FAERS Safety Report 13524006 (Version 1)
Quarter: 2017Q2

REPORT INFORMATION
  Report Type: Report from Study
  Country: CO (occurrence: CO)
  Receive Date: 20170508
  Receipt Date: 20170508
  Transmission Date: 20170830
  Serious: Yes (Death, Hospitalization)
  Sender: FDA-Public Use
  Company Number: PHHY2017CO047955

PATIENT
  Age: 7 Year
  Sex: Female
  Weight: 24 kg

DRUGS (1)
  1. EXJADE [Suspect]
     Active Substance: DEFERASIROX
     Indication: SICKLE CELL ANAEMIA
     Dosage: 250 MG, BID
     Route: 048
     Dates: start: 20150202

REACTIONS (5)
  - Seizure [Unknown]
  - Pleural effusion [Unknown]
  - Disease recurrence [Unknown]
  - Respiratory arrest [Fatal]
  - Sickle cell anaemia [Unknown]

NARRATIVE: CASE EVENT DATE: 20170417
